FAERS Safety Report 5986328-2 (Version None)
Quarter: 2008Q4

REPORT INFORMATION
  Report Type: 
  Country: None (occurrence: None)
  Receive Date: 20081203
  Receipt Date: 20081117
  Transmission Date: 20090506
  Serious: Yes (Hospitalization)
  Sender: FDA-Public Use
  Company Number: 2008US003150

PATIENT
  Age: 62 Year
  Sex: Female

DRUGS (1)
  1. AMBISOME [Suspect]
     Indication: CANDIDIASIS
     Dosage: 3 MG/KG, IV NOS; 50 MG
     Route: 042
     Dates: start: 20080709, end: 20080709

REACTIONS (5)
  - ANGIOEDEMA [None]
  - DRUG HYPERSENSITIVITY [None]
  - SENSE OF OPPRESSION [None]
  - SUFFOCATION FEELING [None]
  - THROAT IRRITATION [None]
